FAERS Safety Report 21201015 (Version 2)
Quarter: 2023Q1

REPORT INFORMATION
  Report Type: Report from Study
  Country: US (occurrence: US)
  Receive Date: 20220811
  Receipt Date: 20230220
  Transmission Date: 20230418
  Serious: No
  Sender: FDA-Public Use
  Company Number: US-AURINIA PHARMACEUTICALS INC.-AUR-000993

PATIENT
  Sex: Female
  Weight: 78.3 kg

DRUGS (1)
  1. LUPKYNIS [Suspect]
     Active Substance: VOCLOSPORIN
     Indication: Lupus nephritis
     Dosage: 7.9 MILLIGRAM, BID
     Route: 048
     Dates: start: 20220309

REACTIONS (4)
  - Abdominal discomfort [Unknown]
  - Protein total abnormal [Unknown]
  - Off label use [Unknown]
  - Product taste abnormal [Unknown]
